FAERS Safety Report 5002888-2 (Version None)
Quarter: 2006Q2

REPORT INFORMATION
  Report Type: 
  Country: None (occurrence: None)
  Receive Date: 20060516
  Receipt Date: 20060215
  Transmission Date: 20061013
  Serious: Yes (Hospitalization)
  Sender: FDA-Public Use
  Company Number: US-AMGEN-US168988

PATIENT
  Sex: Female
  Weight: 72.6 kg

DRUGS (4)
  1. ENBREL [Suspect]
     Indication: RHEUMATOID ARTHRITIS
     Route: 058
     Dates: start: 19990101, end: 20050701
  2. METHOTREXATE [Concomitant]
     Route: 065
     Dates: start: 19960101
  3. PLAQUENIL [Concomitant]
     Route: 065
     Dates: start: 19990201
  4. PREDNISONE TAB [Concomitant]
     Route: 048

REACTIONS (6)
  - BRONCHIECTASIS [None]
  - CONDITION AGGRAVATED [None]
  - ESCHERICHIA INFECTION [None]
  - PRODUCTIVE COUGH [None]
  - SINUSITIS [None]
  - STAPHYLOCOCCAL INFECTION [None]
